FAERS Safety Report 5626270-X (Version None)
Quarter: 2008Q1

REPORT INFORMATION
  Report Type: 
  Country: None (occurrence: None)
  Receive Date: 20080214
  Receipt Date: 20080206
  Transmission Date: 20080703
  Serious: Yes (Death, Hospitalization)
  Sender: FDA-Public Use
  Company Number: BR-ABBOTT-07P-020-0425197-00

PATIENT
  Sex: Female

DRUGS (4)
  1. HUMIRA [Suspect]
     Indication: RHEUMATOID ARTHRITIS
     Route: 058
     Dates: end: 20071101
  2. CORTICOID [Interacting]
     Indication: SYSTEMIC LUPUS ERYTHEMATOSUS
  3. UNKNOWN MEDICATION [Concomitant]
     Indication: DRUG USE FOR UNKNOWN INDICATION
  4. UNKNOWN ANTI-CONVULSIVE [Concomitant]
     Indication: CONVULSION

REACTIONS (5)
  - DRUG INTERACTION [None]
  - MULTI-ORGAN FAILURE [None]
  - RENAL FAILURE [None]
  - SEPSIS [None]
  - SYSTEMIC LUPUS ERYTHEMATOSUS [None]
